FAERS Safety Report 23020324 (Version 1)
Quarter: 2023Q4

REPORT INFORMATION
  Report Type: Spontaneous
  Country: US (occurrence: None)
  Receive Date: 20231002
  Receipt Date: 20231002
  Transmission Date: 20240110
  Serious: Yes (Hospitalization)
  Sender: FDA-Public Use
  Company Number: None

PATIENT
  Age: 92 Year
  Sex: Female
  Weight: 39.6 kg

DRUGS (15)
  1. CYPROHEPTADINE [Suspect]
     Active Substance: CYPROHEPTADINE
     Indication: Bipolar disorder
     Dosage: FREQUENCY : 3 TIMES A DAY;?
     Route: 048
     Dates: start: 20230426, end: 20230515
  2. CYPROHEPTADINE [Suspect]
     Active Substance: CYPROHEPTADINE
     Indication: Weight decreased
  3. acetaminophen 650mg BID [Concomitant]
  4. ascorbic acid 500mg BID [Concomitant]
  5. ASPIRIN [Concomitant]
     Active Substance: ASPIRIN
  6. bisacodyl 10mg suppository HS [Concomitant]
  7. cholecalciferol 5000 units once weekly [Concomitant]
  8. clonazepam 1mg BID [Concomitant]
  9. cyanocobalamin 1000mcg daily [Concomitant]
  10. gabapentin 300mg TID [Concomitant]
  11. iron polysaccharide 150mg at noon [Concomitant]
  12. levothyroxine 25mcg daily [Concomitant]
  13. melatonin 3mg HS [Concomitant]
  14. Miralax 17g BID [Concomitant]
  15. Fluoxetine 40mg daily [Concomitant]

REACTIONS (2)
  - Vomiting [None]
  - Pneumonia aspiration [None]

NARRATIVE: CASE EVENT DATE: 20230509
